FAERS Safety Report 16754207 (Version 1)
Quarter: 2019Q3

REPORT INFORMATION
  Report Type: Spontaneous
  Country: GB (occurrence: GB)
  Receive Date: 20190829
  Receipt Date: 20190829
  Transmission Date: 20191005
  Serious: Yes (Hospitalization)
  Sender: FDA-Public Use
  Company Number: GB-PFIZER INC-2019366706

PATIENT
  Age: 71 Year
  Sex: Male

DRUGS (4)
  1. SERTRALINE HCL [Suspect]
     Active Substance: SERTRALINE HYDROCHLORIDE
     Dosage: 100 MG, 1X/DAY
     Dates: start: 20190124
  2. CHLORAMPHENICOL [Concomitant]
     Active Substance: CHLORAMPHENICOL
     Dosage: 4 GTT, 1X/DAY IN THE AFFECTED EYE(S)
     Dates: start: 20190117
  3. NYSTATIN. [Concomitant]
     Active Substance: NYSTATIN
     Dosage: 4 ML, DAILY (100,000UNITS/ML ORAL SUSPENSION TO BE DROPPED INTO THE MOUTH FOUR TIMES A DAY. 28 ML)
     Dates: start: 20190104
  4. MICONAZOLE. [Concomitant]
     Active Substance: MICONAZOLE
     Dosage: 10 ML, DAILY (20MG/G. AFTER MEALS)
     Dates: start: 20190107

REACTIONS (1)
  - Upper gastrointestinal haemorrhage [Recovered/Resolved]
